FAERS Safety Report 4852738-X (Version None)
Quarter: 2005Q4

REPORT INFORMATION
  Report Type: 
  Country: None (occurrence: None)
  Receive Date: 20051125
  Receipt Date: 20050321
  Transmission Date: 20060501
  Serious: Yes (Other)
  Sender: FDA-Public Use
  Company Number: 2005048146

PATIENT
  Age: 65 Year
  Sex: Male
  Weight: 88.4514 kg

DRUGS (7)
  1. TIKOSYN [Suspect]
     Indication: ATRIAL FIBRILLATION
     Dosage: 0.5 MG (0.25 MG, 2 IN 1 D), ORAL
     Route: 048
     Dates: start: 20050101
  2. SINGLET ^DOW^ (CHLORPEHAMINE MALEATE, PARACETAMOL, PHENYLEPHRINE HYDRO [Suspect]
     Indication: EYE PRURITUS
     Dosage: 2MG/5MG
  3. SINGLET ^DOW^ (CHLORPEHAMINE MALEATE, PARACETAMOL, PHENYLEPHRINE HYDRO [Suspect]
     Indication: MULTIPLE ALLERGIES
     Dosage: 2MG/5MG
  4. WARFARIN SODIUM [Concomitant]
  5. VITAMINS [Concomitant]
  6. METHYLSULFONYLMETHANE [Concomitant]
  7. GLUCOSAMINE W/CHONDROITIN SULFATES (ASCORBIC ACID, CHONDROITIN SULFATE [Concomitant]

REACTIONS (7)
  - CHOKING [None]
  - DIARRHOEA [None]
  - DYSPEPSIA [None]
  - EYE PRURITUS [None]
  - FLATULENCE [None]
  - HYPERSENSITIVITY [None]
  - NASAL CONGESTION [None]
